FAERS Safety Report 18348797 (Version 3)
Quarter: 2023Q1

REPORT INFORMATION
  Report Type: Spontaneous
  Country: US (occurrence: US)
  Receive Date: 20201006
  Receipt Date: 20230310
  Transmission Date: 20230418
  Serious: No
  Sender: FDA-Public Use
  Company Number: US-SA-2020SA271296

PATIENT
  Age: 67 Year
  Sex: Female

DRUGS (2)
  1. KEVZARA [Suspect]
     Active Substance: SARILUMAB
     Indication: Product used for unknown indication
     Dosage: 200 MG, QOW
     Route: 058
     Dates: start: 201811
  2. KEVZARA [Suspect]
     Active Substance: SARILUMAB
     Indication: Rheumatoid arthritis

REACTIONS (4)
  - Fall [Unknown]
  - Joint injury [Unknown]
  - Arthralgia [Unknown]
  - Dental operation [Unknown]

NARRATIVE: CASE EVENT DATE: 20200901
